FAERS Safety Report 22615622 (Version 1)
Quarter: 2023Q2

REPORT INFORMATION
  Report Type: Spontaneous
  Country: GB (occurrence: GB)
  Receive Date: 20230619
  Receipt Date: 20230619
  Transmission Date: 20230721
  Serious: Yes (Hospitalization)
  Sender: FDA-Public Use
  Company Number: GB-AMGEN-GBRSP2023103549

PATIENT
  Age: 68 Year
  Sex: Male
  Weight: 109 kg

DRUGS (13)
  1. ADALIMUMAB [Suspect]
     Active Substance: ADALIMUMAB
     Indication: Psoriasis
     Dosage: 40 MILLIGRAM, Q2WK
     Route: 065
     Dates: start: 20200121
  2. VALSARTAN [Concomitant]
     Active Substance: VALSARTAN
     Dosage: UNK
     Dates: start: 20171228
  3. ROSUVASTATIN [Concomitant]
     Active Substance: ROSUVASTATIN
     Dosage: UNK
     Dates: start: 20171228
  4. TADALAFIL [Concomitant]
     Active Substance: TADALAFIL
     Dosage: UNK
     Dates: start: 20180622
  5. SILDENAFIL CITRATE [Concomitant]
     Active Substance: SILDENAFIL CITRATE
     Dosage: UNK
     Dates: start: 20190626
  6. TRIMETHOPRIM [Concomitant]
     Active Substance: TRIMETHOPRIM
     Dosage: UNK
     Dates: start: 20210204
  7. COCODAMOL [Concomitant]
     Active Substance: ACETAMINOPHEN\CODEINE PHOSPHATE
     Dosage: UNK
     Dates: start: 20210205
  8. DIAZEPAM [Concomitant]
     Active Substance: DIAZEPAM
     Dosage: UNK
     Dates: start: 20210215
  9. CLOPIDOGREL [Concomitant]
     Active Substance: CLOPIDOGREL BISULFATE
     Dosage: UNK
     Dates: start: 20210507
  10. ASPIRIN [Concomitant]
     Active Substance: ASPIRIN
     Dosage: UNK
     Dates: start: 20210901
  11. SPIKEVAX [Concomitant]
     Active Substance: ELASOMERAN
     Dosage: UNK
     Dates: start: 20221011, end: 20221011
  12. SPIKEVAX [Concomitant]
     Active Substance: ELASOMERAN
     Dosage: UNK
     Dates: start: 20230515, end: 20230515
  13. INFLUENZA VIRUS VACCINE [Concomitant]
     Active Substance: INFLUENZA VIRUS VACCINE
     Dosage: UNK
     Dates: start: 20221011, end: 20221011

REACTIONS (1)
  - Transurethral prostatectomy [Unknown]

NARRATIVE: CASE EVENT DATE: 20221101
